FAERS Safety Report 11393110 (Version 3)
Quarter: 2015Q3

REPORT INFORMATION
  Report Type: Report from Study
  Country: PH (occurrence: PH)
  Receive Date: 20150818
  Receipt Date: 20150908
  Transmission Date: 20151125
  Serious: Yes (Death, Other)
  Sender: FDA-Public Use
  Company Number: PH-JNJFOC-20150806928

PATIENT
  Age: 28 Year
  Sex: Male

DRUGS (3)
  1. LENALIDOMIDE [Concomitant]
     Active Substance: LENALIDOMIDE
     Indication: NON-HODGKIN^S LYMPHOMA
     Route: 048
  2. IBRUTINIB [Suspect]
     Active Substance: IBRUTINIB
     Indication: NON-HODGKIN^S LYMPHOMA
     Route: 048
  3. IBRUTINIB [Suspect]
     Active Substance: IBRUTINIB
     Indication: NON-HODGKIN^S LYMPHOMA
     Route: 048

REACTIONS (9)
  - Dyspnoea [Unknown]
  - Oedema peripheral [Unknown]
  - Therapy cessation [Unknown]
  - Asthenia [Unknown]
  - Abdominal mass [Unknown]
  - Off label use [Unknown]
  - Decreased appetite [Unknown]
  - Death [Fatal]
  - Dysphagia [Unknown]
